FAERS Safety Report 21763589 (Version 1)
Quarter: 2022Q4

REPORT INFORMATION
  Report Type: Other
  Country: BR (occurrence: None)
  Receive Date: 20221222
  Receipt Date: 20221222
  Transmission Date: 20230113
  Serious: Yes (Other)
  Sender: FDA-Public Use
  Company Number: BR-ROCHE-3243847

PATIENT
  Age: 54 Year
  Sex: Female
  Weight: 79 kg

DRUGS (3)
  1. ACTEMRA [Suspect]
     Active Substance: TOCILIZUMAB
     Indication: Rheumatoid arthritis
     Dosage: MOST RECENT INFUSION WAS ON 01/NOV/2022
     Route: 042
     Dates: start: 20220104
  2. DIOSMIN [Concomitant]
     Active Substance: DIOSMIN
     Indication: Menopause
  3. SIMVASTATIN [Concomitant]
     Active Substance: SIMVASTATIN
     Indication: Blood cholesterol abnormal

REACTIONS (2)
  - Kidney infection [Recovered/Resolved]
  - Urinary tract infection [Recovered/Resolved]

NARRATIVE: CASE EVENT DATE: 20221101
